FAERS Safety Report 11006140 (Version 1)
Quarter: 2015Q2

REPORT INFORMATION
  Report Type: Spontaneous
  Country: US (occurrence: US)
  Receive Date: 20150409
  Receipt Date: 20150409
  Transmission Date: 20150821
  Serious: No
  Sender: FDA-Public Use
  Company Number: US-ALLERGAN-1407381US

PATIENT
  Sex: Female

DRUGS (1)
  1. LATISSE [Suspect]
     Active Substance: BIMATOPROST
     Indication: GROWTH OF EYELASHES
     Route: 061

REACTIONS (7)
  - Pain [Not Recovered/Not Resolved]
  - Rash papular [Recovered/Resolved]
  - Headache [Unknown]
  - Eye pain [Not Recovered/Not Resolved]
  - Drug administered at inappropriate site [Unknown]
  - Upper extremity mass [Recovered/Resolved]
  - Breast mass [Recovered/Resolved]
